FAERS Safety Report 4710166-1 (Version None)
Quarter: 2005Q3

REPORT INFORMATION
  Report Type: 
  Country: None (occurrence: None)
  Receive Date: 20050708
  Receipt Date: 20050708
  Transmission Date: 20060218
  Serious: Yes (Other)
  Sender: FDA-Public Use
  Company Number: None

PATIENT
  Age: 61 Year
  Sex: Female

DRUGS (13)
  1. TOPAMAX [Suspect]
     Indication: HEADACHE
     Dosage: 1 AT BEDTIME
     Route: 048
     Dates: start: 20050601, end: 20050621
  2. TOPAMAX [Suspect]
     Indication: MIGRAINE
     Dosage: 1 AT BEDTIME
     Route: 048
     Dates: start: 20050601, end: 20050621
  3. DEMEROL [Concomitant]
  4. CLONIDINE [Concomitant]
  5. LOTENSIN [Concomitant]
  6. HYDROCHLOROTHIAZIDE [Concomitant]
  7. PROMETHAZINE [Concomitant]
  8. TEMAZEPAM [Concomitant]
  9. VALIUM [Concomitant]
  10. ZOCOR [Concomitant]
  11. WELLBUTRIN [Concomitant]
  12. ALBUTEROL [Concomitant]
  13. MYLANTA [Concomitant]

REACTIONS (2)
  - APHASIA [None]
  - ASTHENIA [None]
